FAERS Safety Report 9526377 (Version 1)
Quarter: 2013Q3

REPORT INFORMATION
  Report Type: Spontaneous
  Country: US (occurrence: US)
  Receive Date: 20130916
  Receipt Date: 20130916
  Transmission Date: 20140515
  Serious: Yes (Other)
  Sender: FDA-Public Use
  Company Number: US-ELI_LILLY_AND_COMPANY-US201309000897

PATIENT
  Sex: Male

DRUGS (3)
  1. HUMALOG LISPRO [Suspect]
  2. HUMALOG LISPRO [Suspect]
  3. HUMALOG LISPRO [Suspect]

REACTIONS (2)
  - Cerebrovascular accident [Unknown]
  - Malaise [Unknown]
